FAERS Safety Report 8822548 (Version 2)
Quarter: 2012Q4

REPORT INFORMATION
  Report Type: 
  Country: US (occurrence: US)
  Receive Date: 20121003
  Receipt Date: 20121003
  Transmission Date: 20130627
  Serious: Yes (Other)
  Sender: FDA-Public Use
  Company Number: US-TEVA-360365USA

PATIENT
  Age: 35 None
  Sex: Female

DRUGS (2)
  1. COPAXONE [Suspect]
     Indication: MULTIPLE SCLEROSIS
     Dates: start: 20120413
  2. KEPPRA [Suspect]
     Indication: PETIT MAL EPILEPSY

REACTIONS (3)
  - Grand mal convulsion [Not Recovered/Not Resolved]
  - Multiple sclerosis relapse [Unknown]
  - Amnesia [Not Recovered/Not Resolved]
